FAERS Safety Report 15716028 (Version 1)
Quarter: 2018Q4

REPORT INFORMATION
  Report Type: Spontaneous
  Country: DE (occurrence: DE)
  Receive Date: 20181213
  Receipt Date: 20181213
  Transmission Date: 20190205
  Serious: Yes (Hospitalization)
  Sender: FDA-Public Use
  Company Number: DE-PFIZER INC-2018507325

PATIENT
  Sex: Female

DRUGS (4)
  1. VENLAFAXINE HCL [Suspect]
     Active Substance: VENLAFAXINE HYDROCHLORIDE
     Indication: SCHIZOPHRENIA
     Dosage: UNK
     Route: 065
  2. CLOZAPIN HEXAL [Suspect]
     Active Substance: CLOZAPINE
     Indication: SCHIZOPHRENIA
     Dosage: 200 MG, 2X/DAY BID (50MG-0-150 MG)
     Route: 065
     Dates: start: 20180626
  3. VENLAFAXINE HCL [Suspect]
     Active Substance: VENLAFAXINE HYDROCHLORIDE
     Indication: DELUSION
  4. CLOZAPIN HEXAL [Suspect]
     Active Substance: CLOZAPINE
     Indication: DELUSION

REACTIONS (13)
  - Blood pressure fluctuation [Not Recovered/Not Resolved]
  - Gait disturbance [Not Recovered/Not Resolved]
  - Somnolence [Not Recovered/Not Resolved]
  - Muscle twitching [Not Recovered/Not Resolved]
  - Parkinson^s disease [Not Recovered/Not Resolved]
  - Disorientation [Not Recovered/Not Resolved]
  - Apraxia [Not Recovered/Not Resolved]
  - Discomfort [Not Recovered/Not Resolved]
  - Lethargy [Not Recovered/Not Resolved]
  - Dizziness [Not Recovered/Not Resolved]
  - Product use in unapproved indication [Unknown]
  - Confusional state [Not Recovered/Not Resolved]
  - Heart rate increased [Not Recovered/Not Resolved]
